FAERS Safety Report 9710849 (Version 1)
Quarter: 2013Q4

REPORT INFORMATION
  Report Type: Spontaneous
  Country: US (occurrence: US)
  Receive Date: 20131126
  Receipt Date: 20131126
  Transmission Date: 20140711
  Serious: No
  Sender: FDA-Public Use
  Company Number: US-BRISTOL-MYERS SQUIBB COMPANY-19022730

PATIENT
  Age: 70 Year
  Sex: Male

DRUGS (3)
  1. BYDUREON [Suspect]
     Indication: TYPE 2 DIABETES MELLITUS
     Dosage: THERAPY FROM DEC12 OR JAN13
  2. ACTOS [Concomitant]
  3. VYTORIN [Concomitant]

REACTIONS (1)
  - Weight decreased [Unknown]
